FAERS Safety Report 21048646 (Version 1)
Quarter: 2022Q3

REPORT INFORMATION
  Report Type: Spontaneous
  Country: US (occurrence: None)
  Receive Date: 20220705
  Receipt Date: 20220705
  Transmission Date: 20221026
  Serious: Yes (Other)
  Sender: FDA-Public Use
  Company Number: None

PATIENT
  Sex: Female
  Weight: 56.25 kg

DRUGS (7)
  1. IMBRUVICA [Suspect]
     Active Substance: IBRUTINIB
  2. ZOLOFT [Concomitant]
     Active Substance: SERTRALINE HYDROCHLORIDE
  3. PANTRAPAZOL [Concomitant]
  4. OXYCODONE [Concomitant]
     Active Substance: OXYCODONE
  5. CLONOPIN [Concomitant]
     Active Substance: CLONAZEPAM
  6. VITAMIN B12 [Concomitant]
     Active Substance: CYANOCOBALAMIN
  7. MELATONIN [Concomitant]
     Active Substance: MELATONIN

REACTIONS (7)
  - Nausea [None]
  - Stomatitis [None]
  - Contusion [None]
  - Vomiting [None]
  - Cold sweat [None]
  - Hyperhidrosis [None]
  - Diarrhoea [None]
